FAERS Safety Report 19467344 (Version 1)
Quarter: 2021Q2

REPORT INFORMATION
  Report Type: Spontaneous
  Country: US (occurrence: US)
  Receive Date: 20210625
  Receipt Date: 20210625
  Transmission Date: 20210717
  Serious: Yes (Other)
  Sender: FDA-Public Use
  Company Number: None

PATIENT
  Age: 61 Year
  Sex: Male

DRUGS (17)
  1. NITROSTAT [Concomitant]
     Active Substance: NITROGLYCERIN
     Dates: start: 20210607
  2. SIMVASTATIN. [Suspect]
     Active Substance: SIMVASTATIN
  3. FLONASE [Concomitant]
     Active Substance: FLUTICASONE PROPIONATE
     Dates: start: 20210607
  4. ROSUVASTATIN TAB [Concomitant]
     Active Substance: ROSUVASTATIN
     Dates: start: 20210607
  5. CO Q?10 CAP [Concomitant]
     Dates: start: 20210607
  6. ATORVASTATIN [Suspect]
     Active Substance: ATORVASTATIN
  7. LOSARTAN POT TAB [Concomitant]
     Dates: start: 20210607
  8. REPATHA [Suspect]
     Active Substance: EVOLOCUMAB
     Indication: CARDIAC DISORDER
     Dosage: ?          OTHER FREQUENCY:EVERY 28 DAYS;?
     Route: 058
     Dates: start: 20210622
  9. MULTIVITAMIN [Concomitant]
     Active Substance: VITAMINS
     Dates: start: 20210607
  10. KLOR?CON M10 TAB [Concomitant]
     Dates: start: 20210607
  11. FUROSEMIDE. [Concomitant]
     Active Substance: FUROSEMIDE
     Dates: start: 20210607
  12. CARVEDILOL. [Concomitant]
     Active Substance: CARVEDILOL
     Dates: start: 20210607
  13. FOLIC ACID TAB [Concomitant]
     Dates: start: 20210607
  14. CLOPIDOGREL TAB [Concomitant]
     Dates: start: 20210607
  15. TRAMADOL HCL TAB [Concomitant]
     Dates: start: 20210607
  16. ASPIRIN. [Concomitant]
     Active Substance: ASPIRIN
     Dates: start: 20210607
  17. PRAVASTATIN. [Suspect]
     Active Substance: PRAVASTATIN

REACTIONS (1)
  - Myocardial infarction [None]

NARRATIVE: CASE EVENT DATE: 20200624
